FAERS Safety Report 6477678-4 (Version None)
Quarter: 2009Q4

REPORT INFORMATION
  Report Type: 
  Country: None (occurrence: None)
  Receive Date: 20091203
  Receipt Date: 20091203
  Transmission Date: 20100525
  Serious: Yes (Other)
  Sender: FDA-Public Use
  Company Number: None

PATIENT
  Sex: Female
  Weight: 49.8957 kg

DRUGS (1)
  1. TETRACYCLINE [Suspect]
     Indication: ACNE
     Dosage: TAKE 1 CAPSULE -250 MG EVERY DAY PO
     Route: 048
     Dates: start: 20091007, end: 20091101

REACTIONS (6)
  - BIPOLAR I DISORDER [None]
  - EDUCATIONAL PROBLEM [None]
  - EUPHORIC MOOD [None]
  - FEAR [None]
  - MOOD SWINGS [None]
  - SELF-INJURIOUS IDEATION [None]
